FAERS Safety Report 9620902 (Version 1)
Quarter: 2013Q4

REPORT INFORMATION
  Report Type: Spontaneous
  Country: FR (occurrence: FR)
  Receive Date: 20131015
  Receipt Date: 20131015
  Transmission Date: 20140711
  Serious: Yes (Hospitalization)
  Sender: FDA-Public Use
  Company Number: FR-ASTRAZENECA-2013SE75371

PATIENT
  Age: 1005 Month
  Sex: Male

DRUGS (11)
  1. HYTACAND [Suspect]
     Dosage: 16 MG/ 12.5 MG DAILY
     Route: 048
     Dates: end: 20130515
  2. KALEORID [Suspect]
     Route: 048
     Dates: end: 20130515
  3. ZANIDIP [Suspect]
     Route: 048
     Dates: end: 20130515
  4. CANDESARTAN-HYDROCHLOROTHIAZIDE TEVA [Concomitant]
  5. PRAVASTATINE TEVA [Concomitant]
  6. LERCANIDIPINE BOUCHARA [Concomitant]
  7. FUROSEMIDE [Concomitant]
  8. NEBIVOLOL TEVA [Concomitant]
  9. TEMERIT [Concomitant]
  10. KARDEGIC [Concomitant]
  11. LASILIX [Concomitant]

REACTIONS (1)
  - Eczema [Recovered/Resolved]
